FAERS Safety Report 21051216 (Version 1)
Quarter: 2022Q3

REPORT INFORMATION
  Report Type: Spontaneous
  Country: FR (occurrence: FR)
  Receive Date: 20220707
  Receipt Date: 20220707
  Transmission Date: 20221027
  Serious: Yes (Other)
  Sender: FDA-Public Use
  Company Number: None

PATIENT
  Age: 68 Year
  Sex: Male
  Weight: 74.4 kg

DRUGS (3)
  1. ALFUZOSIN HYDROCHLORIDE [Suspect]
     Active Substance: ALFUZOSIN HYDROCHLORIDE
     Indication: Dysuria
     Dosage: FREQUENCY TIME : 1 DAY, UNIT DOSE : 10MG
     Route: 048
     Dates: start: 20220318
  2. PANTOPRAZOLE [Suspect]
     Active Substance: PANTOPRAZOLE
     Indication: Gastrooesophageal reflux disease
     Dosage: FREQUENCY TIME : 1 DAY, UNIT DOSE : 20MG
     Route: 048
     Dates: start: 20220329
  3. BISOPROLOL [Suspect]
     Active Substance: BISOPROLOL
     Indication: Hypertension
     Dosage: FREQUENCY TIME : 1 DAY, UNIT DOSE : 5MG , BISOPROLOL (HEMIFUMARATE)
     Route: 048
     Dates: start: 20220329

REACTIONS (1)
  - Electrocardiogram QT prolonged [Recovered/Resolved]

NARRATIVE: CASE EVENT DATE: 20220412
